FAERS Safety Report 5321407-4 (Version None)
Quarter: 2007Q2

REPORT INFORMATION
  Report Type: 
  Country: None (occurrence: None)
  Receive Date: 20070507
  Receipt Date: 20070507
  Transmission Date: 20071010
  Serious: No
  Sender: FDA-Public Use
  Company Number: None

PATIENT
  Age: 80 Year
  Sex: Male

DRUGS (2)
  1. ASPIRIN [Suspect]
  2. WARFARIN [Suspect]

REACTIONS (1)
  - GASTROINTESTINAL HAEMORRHAGE [None]
